FAERS Safety Report 24769740 (Version 1)
Quarter: 2024Q4

REPORT INFORMATION
  Report Type: Spontaneous
  Country: JP (occurrence: JP)
  Receive Date: 20241224
  Receipt Date: 20241224
  Transmission Date: 20250114
  Serious: Yes (Death)
  Sender: STRIDES
  Company Number: JP-STRIDES ARCOLAB LIMITED-2024SP016852

PATIENT
  Sex: Female

DRUGS (10)
  1. PREDNISOLONE [Suspect]
     Active Substance: PREDNISOLONE
     Indication: Anti-neutrophil cytoplasmic antibody positive vasculitis
     Dosage: 30 MILLIGRAM
     Route: 048
  2. PREDNISOLONE [Suspect]
     Active Substance: PREDNISOLONE
     Dosage: 40 MILLIGRAM
     Route: 048
  3. URSODIOL [Suspect]
     Active Substance: URSODIOL
     Indication: Hepatic fibrosis
     Dosage: 300 MILLIGRAM
     Route: 065
  4. PROPYLTHIOURACIL [Concomitant]
     Active Substance: PROPYLTHIOURACIL
     Indication: Graves^ disease
     Dosage: 150 MILLIGRAM
     Route: 048
  5. PROPYLTHIOURACIL [Concomitant]
     Active Substance: PROPYLTHIOURACIL
     Dosage: 300 MILLIGRAM
     Route: 065
  6. ASPIRIN [Concomitant]
     Active Substance: ASPIRIN
     Indication: Hypoaesthesia
     Dosage: 100 MILLIGRAM
     Route: 065
  7. ASPIRIN [Concomitant]
     Active Substance: ASPIRIN
     Indication: Hypoaesthesia
  8. METHIMAZOLE [Concomitant]
     Active Substance: METHIMAZOLE
     Indication: Graves^ disease
     Dosage: 30 MILLIGRAM
     Route: 065
  9. POTASSIUM IODIDE [Concomitant]
     Active Substance: POTASSIUM IODIDE
     Indication: Graves^ disease
     Dosage: 50 MILLIGRAM
     Route: 065
  10. PROPRANOLOL [Concomitant]
     Active Substance: PROPRANOLOL HYDROCHLORIDE
     Indication: Graves^ disease
     Dosage: 30 MILLIGRAM
     Route: 065

REACTIONS (3)
  - Multiple organ dysfunction syndrome [Fatal]
  - Drug ineffective [Fatal]
  - Off label use [Unknown]
